FAERS Safety Report 4974131-1 (Version None)
Quarter: 2006Q2

REPORT INFORMATION
  Report Type: 
  Country: None (occurrence: None)
  Receive Date: 20060417
  Receipt Date: 20060306
  Transmission Date: 20061013
  Serious: Yes (Hospitalization)
  Sender: FDA-Public Use
  Company Number: US-MERCK-0603USA01007

PATIENT
  Age: 60 Year
  Sex: Female
  Weight: 70 kg

DRUGS (8)
  1. VIOXX [Suspect]
     Indication: BACK PAIN
     Route: 048
     Dates: start: 19990802, end: 20020419
  2. VIOXX [Suspect]
     Route: 048
     Dates: start: 19990802, end: 20020419
  3. VIOXX [Suspect]
     Indication: INTERVERTEBRAL DISC PROTRUSION
     Route: 048
     Dates: start: 19990802, end: 20020419
  4. VIOXX [Suspect]
     Route: 048
     Dates: start: 19990802, end: 20020419
  5. TOPROL-XL [Concomitant]
     Indication: HYPERTENSION
     Route: 065
  6. ALTACE [Concomitant]
     Indication: HYPERTENSION
     Route: 065
  7. PRAVACHOL [Concomitant]
     Indication: BLOOD CHOLESTEROL INCREASED
     Route: 065
  8. ZETIA [Concomitant]
     Indication: BLOOD CHOLESTEROL INCREASED
     Route: 048

REACTIONS (9)
  - ARTERIOSCLEROSIS [None]
  - BONE DENSITY DECREASED [None]
  - CORONARY ARTERY DISEASE [None]
  - DEPRESSION [None]
  - FLUID RETENTION [None]
  - GASTROOESOPHAGEAL REFLUX DISEASE [None]
  - INTERVERTEBRAL DISC PROTRUSION [None]
  - MYOCARDIAL INFARCTION [None]
  - RESTLESS LEGS SYNDROME [None]
